FAERS Safety Report 5170574-4 (Version None)
Quarter: 2006Q4

REPORT INFORMATION
  Report Type: 
  Country: None (occurrence: None)
  Receive Date: 20061205
  Receipt Date: 20061107
  Transmission Date: 20070319
  Serious: Yes (Other)
  Sender: FDA-Public Use
  Company Number: 2006062015

PATIENT
  Sex: Male
  Weight: 78 kg

DRUGS (2)
  1. VIAGRA [Suspect]
     Dosage: ORAL
     Route: 048
     Dates: end: 20060101
  2. SYMBICORT [Concomitant]

REACTIONS (3)
  - ASTHMA [None]
  - BRONCHOSPASM [None]
  - CONDITION AGGRAVATED [None]
